FAERS Safety Report 6265108-7 (Version None)
Quarter: 2009Q3

REPORT INFORMATION
  Report Type: 
  Country: None (occurrence: None)
  Receive Date: 20090709
  Receipt Date: 20090709
  Transmission Date: 20100115
  Serious: Yes (Death)
  Sender: FDA-Public Use
  Company Number: None

PATIENT
  Sex: Female
  Weight: 8.12 kg

DRUGS (1)
  1. FOSPHENYTOIN SODIUM [Suspect]
     Indication: CONVULSION
     Dosage: 160MG IV OVER 10MIN ON PUMP
     Route: 042
     Dates: start: 20090301

REACTIONS (7)
  - BLOOD GLUCOSE INCREASED [None]
  - CONVULSION [None]
  - COUGH [None]
  - DYSPNOEA [None]
  - FEEDING DISORDER [None]
  - RHINORRHOEA [None]
  - VOMITING [None]
